FAERS Safety Report 18960566 (Version 2)
Quarter: 2021Q2

REPORT INFORMATION
  Report Type: Spontaneous
  Country: BE (occurrence: BE)
  Receive Date: 20210302
  Receipt Date: 20210426
  Transmission Date: 20210717
  Serious: Yes (Death, Life-Threatening, Hospitalization, Other)
  Sender: FDA-Public Use
  Company Number: NVSC2021BE047868

PATIENT
  Age: 59 Year
  Sex: Female
  Weight: 47.9 kg

DRUGS (12)
  1. XGEVA [Concomitant]
     Active Substance: DENOSUMAB
     Indication: BREAST CANCER
     Dosage: 120 MG 1/M
     Route: 058
     Dates: start: 20181221, end: 20210120
  2. AROMASIN [Concomitant]
     Active Substance: EXEMESTANE
     Indication: BREAST CANCER
  3. TAVANIC [Concomitant]
     Active Substance: LEVOFLOXACIN
     Indication: INFLAMMATION
     Dosage: 500 MG/100ML 1/D
     Route: 042
     Dates: start: 20210213, end: 20210214
  4. PANTOMED [Concomitant]
     Indication: GASTRIC DISORDER
     Dosage: 40 MG 1/D
     Route: 048
     Dates: start: 20210211, end: 20210214
  5. OXYNORM [Concomitant]
     Active Substance: OXYCODONE HYDROCHLORIDE
     Indication: BACK PAIN
     Dosage: 5 MG 6/D (COMPR)
     Route: 048
     Dates: start: 20210213, end: 20210214
  6. DAFALGAN [Concomitant]
     Active Substance: ACETAMINOPHEN
     Indication: BACK PAIN
     Dosage: 1 G (3/D)
     Route: 048
     Dates: start: 20210211, end: 20210214
  7. DUROGESIC [Concomitant]
     Active Substance: FENTANYL
     Indication: BACK PAIN
     Dosage: 1X/3D (PATCH)
     Route: 062
     Dates: start: 20210212, end: 20210214
  8. AROMASIN [Concomitant]
     Active Substance: EXEMESTANE
     Indication: BREAST CANCER METASTATIC
     Dosage: 25 MG (1/D)
     Route: 048
     Dates: start: 20200426, end: 20210214
  9. SIPRALEXA [Concomitant]
     Active Substance: ESCITALOPRAM OXALATE
     Indication: MOOD ALTERED
     Dosage: 10 MG 1/D
     Route: 048
     Dates: start: 20181217, end: 20210214
  10. AFINITOR [Suspect]
     Active Substance: EVEROLIMUS
     Indication: BREAST CANCER METASTATIC
     Dosage: 10 MG, ((1/D)
     Route: 048
     Dates: start: 20200726, end: 20210211
  11. LITICAN [Concomitant]
     Active Substance: ALIZAPRIDE HYDROCHLORIDE
     Indication: NAUSEA
     Dosage: 50 MG 6/D (BOLUS IV)
     Route: 042
     Dates: start: 20210214, end: 20210214
  12. AFINITOR [Suspect]
     Active Substance: EVEROLIMUS
     Dosage: 5 MG
     Route: 048
     Dates: start: 20210211, end: 20210212

REACTIONS (19)
  - Circulatory collapse [Fatal]
  - Weight decreased [Fatal]
  - Fatigue [Fatal]
  - Cachexia [Unknown]
  - Thrombotic microangiopathy [Fatal]
  - Anaemia [Not Recovered/Not Resolved]
  - Neutropenia [Not Recovered/Not Resolved]
  - Lymphoproliferative disorder [Recovered/Resolved]
  - Acute respiratory distress syndrome [Unknown]
  - Asthenia [Fatal]
  - Mucosal haemorrhage [Fatal]
  - Leukoerythroblastic anaemia [Fatal]
  - Bone marrow disorder [Fatal]
  - Haematuria [Not Recovered/Not Resolved]
  - Erythroblastosis [Not Recovered/Not Resolved]
  - Multiple organ dysfunction syndrome [Fatal]
  - Thrombocytopenia [Not Recovered/Not Resolved]
  - Pancytopenia [Fatal]
  - Cardiac arrest [Fatal]

NARRATIVE: CASE EVENT DATE: 20201223
